FAERS Safety Report 9308361 (Version 1)
Quarter: 2013Q2

REPORT INFORMATION
  Report Type: Spontaneous
  Country: LV (occurrence: LV)
  Receive Date: 20130524
  Receipt Date: 20130524
  Transmission Date: 20140414
  Serious: Yes (Other)
  Sender: FDA-Public Use
  Company Number: LV-GLAXOSMITHKLINE-B0893295A

PATIENT
  Age: 59 Year
  Sex: Female

DRUGS (2)
  1. VOTRIENT [Suspect]
     Indication: SARCOMA
     Dosage: 800MG PER DAY
     Route: 048
     Dates: start: 201301, end: 20130508
  2. DOXORUBICIN [Concomitant]

REACTIONS (5)
  - Duodenal ulcer [Recovering/Resolving]
  - Gastritis erosive [Recovering/Resolving]
  - Abdominal pain upper [Recovered/Resolved]
  - Nausea [Recovered/Resolved]
  - Appetite disorder [Recovered/Resolved]
